FAERS Safety Report 5458734-6 (Version None)
Quarter: 2007Q3

REPORT INFORMATION
  Report Type: 
  Country: None (occurrence: None)
  Receive Date: 20070919
  Receipt Date: 20070424
  Transmission Date: 20080115
  Serious: No
  Sender: FDA-Public Use
  Company Number: US-ASTRAZENECA-2007UW08033

PATIENT
  Age: 31 Year
  Sex: Male
  Weight: 81.6 kg

DRUGS (4)
  1. SEROQUEL [Suspect]
     Indication: ANXIETY
     Dosage: DAY ONE
     Route: 048
  2. SEROQUEL [Suspect]
     Dosage: DAY TWO
     Route: 048
  3. SEROQUEL [Suspect]
     Dosage: DAY THREE
     Route: 048
  4. SEROQUEL [Suspect]
     Dosage: DAY FOUR
     Route: 048

REACTIONS (7)
  - CHILLS [None]
  - GAIT DISTURBANCE [None]
  - HEADACHE [None]
  - HOT FLUSH [None]
  - MALAISE [None]
  - PAIN [None]
  - PHOTOSENSITIVITY REACTION [None]
